FAERS Safety Report 11131247 (Version 12)
Quarter: 2016Q2

REPORT INFORMATION
  Report Type: Report from Study
  Country: US (occurrence: US)
  Receive Date: 20150522
  Receipt Date: 20160627
  Transmission Date: 20160815
  Serious: Yes (Life-Threatening, Hospitalization, Other)
  Sender: FDA-Public Use
  Company Number: US-SA-2015SA045718

PATIENT
  Age: 43 Year
  Sex: Male

DRUGS (1)
  1. LEMTRADA [Suspect]
     Active Substance: ALEMTUZUMAB
     Indication: MULTIPLE SCLEROSIS
     Route: 041
     Dates: start: 20150330, end: 20150403

REACTIONS (20)
  - Pyrexia [Unknown]
  - Pain [Recovering/Resolving]
  - CD4 lymphocytes decreased [Recovered/Resolved]
  - Multiple sclerosis [Not Recovered/Not Resolved]
  - Hypoaesthesia [Unknown]
  - Paraesthesia [Not Recovered/Not Resolved]
  - Sinus disorder [Unknown]
  - Neuralgia [Unknown]
  - Immune thrombocytopenic purpura [Recovered/Resolved]
  - Fatigue [Recovering/Resolving]
  - Macrocytosis [Recovering/Resolving]
  - White blood cell count decreased [Recovered/Resolved]
  - Herpes zoster [Recovering/Resolving]
  - Arthralgia [Unknown]
  - Abasia [Unknown]
  - Haemorrhage [Recovered/Resolved]
  - Paraesthesia [Recovering/Resolving]
  - Hypoaesthesia [Recovering/Resolving]
  - Hypersensitivity [Unknown]
  - Platelet count decreased [Recovered/Resolved]

NARRATIVE: CASE EVENT DATE: 2015
